FAERS Safety Report 13144872 (Version 1)
Quarter: 2017Q1

REPORT INFORMATION
  Report Type: Report from Study
  Country: DE (occurrence: DE)
  Receive Date: 20170124
  Receipt Date: 20170124
  Transmission Date: 20170428
  Serious: Yes (Hospitalization)
  Sender: FDA-Public Use
  Company Number: DE-ROCHE-1714764

PATIENT
  Age: 72 Year
  Sex: Female
  Weight: 57 kg

DRUGS (6)
  1. PERTUZUMAB [Suspect]
     Active Substance: PERTUZUMAB
     Dosage: MOST RECENT DOSE PRIOR TO SAE (REDUCED GENERAL CONDITION): 21/DEC/2015?MAINTENANCE DOSE
     Route: 042
     Dates: end: 20160120
  2. TRASTUZUMAB [Suspect]
     Active Substance: TRASTUZUMAB
     Indication: HER-2 POSITIVE BREAST CANCER
     Route: 042
     Dates: start: 20151019
  3. TRASTUZUMAB [Suspect]
     Active Substance: TRASTUZUMAB
     Dosage: MAINTENANCE DOSE: 6 MG/KG?MOST RECENT DOSE PRIOR TO SAE (REDUCED GENERAL CONDITION): 21/DEC/2015?LAS
     Route: 042
     Dates: end: 20160120
  4. DOXORUBICIN HYDROCHLORIDE. [Suspect]
     Active Substance: DOXORUBICIN HYDROCHLORIDE
     Indication: HER-2 POSITIVE BREAST CANCER
     Dosage: MOST RECENT DOSE PRIOR TO SAE (REDUCED GENERAL CONDITION): 29/DEC/2015?LAST DOSE PRIOR TO SAE (LEFT
     Route: 042
     Dates: start: 20151019, end: 20160120
  5. PERTUZUMAB [Suspect]
     Active Substance: PERTUZUMAB
     Indication: HER-2 POSITIVE BREAST CANCER
     Dosage: LOADING DOSE
     Route: 042
     Dates: start: 20151019
  6. PACLITAXEL. [Suspect]
     Active Substance: PACLITAXEL
     Indication: HER-2 POSITIVE BREAST CANCER
     Dosage: MOST RECENT DOSE PRIOR TO SAE (REDUCED GENERAL CONDITION): 29/DEC/2015?LAST DOSE PRIOR TO SAE (LEFT
     Route: 042
     Dates: start: 20151019, end: 20160120

REACTIONS (2)
  - General physical health deterioration [Recovered/Resolved]
  - Left ventricular dysfunction [Recovered/Resolved]

NARRATIVE: CASE EVENT DATE: 20160103
